FAERS Safety Report 13005309 (Version 1)
Quarter: 2016Q4

REPORT INFORMATION
  Report Type: Spontaneous
  Country: JP (occurrence: JP)
  Receive Date: 20161207
  Receipt Date: 20161207
  Transmission Date: 20170207
  Serious: Yes (Death, Other)
  Sender: FDA-Public Use
  Company Number: PHHY2016JP166318

PATIENT
  Age: 66 Year
  Sex: Male

DRUGS (1)
  1. PAZOPANIB [Suspect]
     Active Substance: PAZOPANIB
     Indication: ANGIOSARCOMA METASTATIC
     Dosage: 800 MG, QD
     Route: 048

REACTIONS (6)
  - Malignant neoplasm progression [Unknown]
  - Pain [Unknown]
  - Nausea [Unknown]
  - Cardio-respiratory arrest [Fatal]
  - Hemiplegia [Unknown]
  - Tumour invasion [Unknown]

NARRATIVE: CASE EVENT DATE: 201412
